FAERS Safety Report 4371486-6 (Version None)
Quarter: 2004Q2

REPORT INFORMATION
  Report Type: 
  Country: None (occurrence: None)
  Receive Date: 20040601
  Receipt Date: 20040513
  Transmission Date: 20050107
  Serious: Yes (Hospitalization)
  Sender: FDA-Public Use
  Company Number: 198118

PATIENT
  Age: 37 Year
  Sex: Female
  Weight: 56.6996 kg

DRUGS (2)
  1. AVONEX [Suspect]
     Indication: MULTIPLE SCLEROSIS
     Dates: start: 20030618, end: 20030618
  2. CELEXA [Concomitant]

REACTIONS (5)
  - BRAIN OEDEMA [None]
  - CARCINOMA [None]
  - CENTRAL NERVOUS SYSTEM LYMPHOMA [None]
  - COMA [None]
  - DIARRHOEA [None]
